FAERS Safety Report 4487766-X (Version None)
Quarter: 2004Q4

REPORT INFORMATION
  Report Type: 
  Country: None (occurrence: None)
  Receive Date: 20041028
  Receipt Date: 20041022
  Transmission Date: 20050328
  Serious: Yes (Hospitalization, Disabling)
  Sender: FDA-Public Use
  Company Number: 200418203US

PATIENT
  Sex: Female

DRUGS (2)
  1. LOVENOX [Suspect]
     Dates: start: 20020831
  2. COUMADIN [Concomitant]
     Dosage: DOSE: UNK
     Dates: end: 20040829

REACTIONS (4)
  - BLINDNESS [None]
  - CEREBROVASCULAR ACCIDENT [None]
  - MENTAL IMPAIRMENT [None]
  - MOTOR DYSFUNCTION [None]
